FAERS Safety Report 21919015 (Version 2)
Quarter: 2023Q1

REPORT INFORMATION
  Report Type: Other
  Country: US (occurrence: None)
  Receive Date: 20230127
  Receipt Date: 20230216
  Transmission Date: 20230417
  Serious: Yes (Other)
  Sender: FDA-Public Use
  Company Number: US-ROCHE-3271255

PATIENT
  Age: 75 Year
  Sex: Female

DRUGS (2)
  1. ACTEMRA [Suspect]
     Active Substance: TOCILIZUMAB
     Indication: Giant cell arteritis
     Route: 058
  2. ACTEMRA [Suspect]
     Active Substance: TOCILIZUMAB

REACTIONS (8)
  - Spinal fracture [Unknown]
  - Swollen tongue [Unknown]
  - Speech disorder [Unknown]
  - Eye disorder [Unknown]
  - Blindness [Unknown]
  - Arthralgia [Unknown]
  - Arteritis [Unknown]
  - Neck injury [Unknown]
